FAERS Safety Report 6414341-X (Version None)
Quarter: 2009Q4

REPORT INFORMATION
  Report Type: 
  Country: None (occurrence: None)
  Receive Date: 20091026
  Receipt Date: 20091023
  Transmission Date: 20100525
  Serious: Yes (Hospitalization, Other)
  Sender: FDA-Public Use
  Company Number: BE-ABBOTT-09P-013-0579829-00

PATIENT
  Sex: Male

DRUGS (12)
  1. HUMIRA [Suspect]
     Indication: RHEUMATOID ARTHRITIS
     Route: 058
     Dates: start: 20040601, end: 20090609
  2. HUMIRA [Suspect]
     Route: 058
     Dates: start: 20090701
  3. LEDERTREXATE [Concomitant]
     Indication: RHEUMATOID ARTHRITIS
     Dosage: 15 MG /WEEK
     Dates: start: 20071201, end: 20090615
  4. MEDROL [Concomitant]
     Indication: RHEUMATOID ARTHRITIS
     Dates: start: 20030101
  5. MEDROL [Concomitant]
  6. PLENDIL [Concomitant]
     Indication: HYPERTENSION
     Dates: start: 20040101
  7. CACO3 [Concomitant]
     Indication: OSTEOPOROSIS PROPHYLAXIS
     Dates: start: 20030101
  8. METHOTREXATE [Concomitant]
     Indication: RHEUMATOID ARTHRITIS
  9. TEVETEN [Concomitant]
     Indication: DRUG USE FOR UNKNOWN INDICATION
  10. CALCIUM [Concomitant]
     Indication: DRUG USE FOR UNKNOWN INDICATION
  11. D-CURE [Concomitant]
     Indication: DRUG USE FOR UNKNOWN INDICATION
  12. PLENDIL RETARD [Concomitant]
     Indication: DRUG USE FOR UNKNOWN INDICATION

REACTIONS (3)
  - AMYOTROPHY [None]
  - ERYSIPELAS [None]
  - NEUROPATHIC ARTHROPATHY [None]
